FAERS Safety Report 4449415-6 (Version None)
Quarter: 2004Q3

REPORT INFORMATION
  Report Type: 
  Country: None (occurrence: None)
  Receive Date: 20040909
  Receipt Date: 20040823
  Transmission Date: 20050211
  Serious: Yes (Hospitalization)
  Sender: FDA-Public Use
  Company Number: B0343317A

PATIENT
  Age: 10 Year
  Sex: Male

DRUGS (5)
  1. ESKALITH [Suspect]
     Dosage: 600 MG/ TWICE PER DAY
  2. METHYLPHENIDATE HCL [Concomitant]
  3. CITALOPRAM [Concomitant]
  4. OXCARBAZEPINE [Concomitant]
  5. CLONIDINE HCL [Concomitant]

REACTIONS (23)
  - ABDOMINAL PAIN [None]
  - ATRIOVENTRICULAR BLOCK FIRST DEGREE [None]
  - CHEST PAIN [None]
  - CONDUCTION DISORDER [None]
  - DIARRHOEA [None]
  - DISORIENTATION [None]
  - DIZZINESS [None]
  - DRUG LEVEL ABOVE THERAPEUTIC [None]
  - ELECTROCARDIOGRAM QRS COMPLEX PROLONGED [None]
  - HYPERHIDROSIS [None]
  - HYPOTENSION [None]
  - MARKEDLY REDUCED DIETARY INTAKE [None]
  - PALLOR [None]
  - PALPITATIONS [None]
  - RHYTHM IDIOVENTRICULAR [None]
  - TACHYARRHYTHMIA [None]
  - TACHYCARDIA [None]
  - THERAPEUTIC AGENT TOXICITY [None]
  - THYROID DISORDER [None]
  - VENTRICULAR EXTRASYSTOLES [None]
  - VENTRICULAR TACHYCARDIA [None]
  - VOMITING [None]
  - WHITE BLOOD CELL COUNT INCREASED [None]
